FAERS Safety Report 8133888-1 (Version None)
Quarter: 2012Q1

REPORT INFORMATION
  Report Type: 
  Country: None (occurrence: None)
  Receive Date: 20120213
  Receipt Date: 20120202
  Transmission Date: 20120608
  Serious: Yes (Hospitalization, Other)
  Sender: FDA-Public Use
  Company Number: US-ELI_LILLY_AND_COMPANY-US201202001057

PATIENT
  Sex: Female

DRUGS (1)
  1. FORTEO [Suspect]
     Indication: OSTEOPOROSIS
     Dosage: UNK

REACTIONS (6)
  - CARDIAC FAILURE CONGESTIVE [None]
  - RALES [None]
  - SEPSIS [None]
  - PULMONARY FIBROSIS [None]
  - LUNG DISORDER [None]
  - DYSPNOEA [None]
